FAERS Safety Report 4406736-0 (Version None)
Quarter: 2004Q3

REPORT INFORMATION
  Report Type: 
  Country: None (occurrence: None)
  Receive Date: 20040715
  Receipt Date: 20040702
  Transmission Date: 20050211
  Serious: Yes (Hospitalization)
  Sender: FDA-Public Use
  Company Number: 2004AP03488

PATIENT
  Age: 80 Year
  Sex: Male

DRUGS (5)
  1. IRESSA [Suspect]
     Indication: NON-SMALL CELL LUNG CANCER
     Dosage: 250 MG DAILY PO
     Route: 048
     Dates: start: 20040614, end: 20040626
  2. GASTER D [Concomitant]
  3. TICLOPIDINE HCL [Concomitant]
  4. BUFFERIN [Concomitant]
  5. HARNAL [Concomitant]

REACTIONS (1)
  - PLATELET COUNT DECREASED [None]
